FAERS Safety Report 25768650 (Version 3)
Quarter: 2025Q4

REPORT INFORMATION
  Report Type: Report from Study
  Country: EU (occurrence: EU)
  Receive Date: 20250905
  Receipt Date: 20251021
  Transmission Date: 20260117
  Serious: Yes (Hospitalization)
  Sender: ABBVIE
  Company Number: EU-ABBVIE-6396442

PATIENT
  Age: 82 Year
  Sex: Female

DRUGS (10)
  1. FOSCARBIDOPA\FOSLEVODOPA [Suspect]
     Active Substance: FOSCARBIDOPA\FOSLEVODOPA
     Indication: Parkinson^s disease
     Dosage: CR 0.43ML/H; CR HIGH 0.45ML/H; CR LOW 0.24ML/H; ED 0.25ML
     Route: 058
     Dates: start: 20240311, end: 20250901
  2. FOSCARBIDOPA\FOSLEVODOPA [Suspect]
     Active Substance: FOSCARBIDOPA\FOSLEVODOPA
     Dosage: CR 0,27ML/H, CR HIGH 0,29ML/H, CR LOW 0,22ML/H
     Route: 058
     Dates: start: 20250901, end: 20250901
  3. FOSCARBIDOPA\FOSLEVODOPA [Suspect]
     Active Substance: FOSCARBIDOPA\FOSLEVODOPA
     Dosage: CR 0.31ML/H; CR HIGH 0.33ML/H; CR LOW 0.22ML/H; ED 0.25ML
     Route: 058
     Dates: start: 20250901
  4. TEGRETOL [Concomitant]
     Active Substance: CARBAMAZEPINE
     Indication: Trigeminal neuralgia
     Route: 048
  5. ONGENTYS [Suspect]
     Active Substance: OPICAPONE
     Indication: Product used for unknown indication
     Route: 048
     Dates: start: 20250816, end: 20250819
  6. Daflon [Concomitant]
     Indication: Product used for unknown indication
  7. ESCITALOPRAM [Concomitant]
     Active Substance: ESCITALOPRAM OXALATE
     Indication: Product used for unknown indication
  8. NORVASC [Concomitant]
     Active Substance: AMLODIPINE BESYLATE
     Indication: Product used for unknown indication
  9. QUETIAPINE [Concomitant]
     Active Substance: QUETIAPINE
     Indication: Product used for unknown indication
  10. PANTOPRAZOLE [Concomitant]
     Active Substance: PANTOPRAZOLE
     Indication: Product used for unknown indication

REACTIONS (5)
  - Trigeminal neuralgia [Not Recovered/Not Resolved]
  - Confusional state [Unknown]
  - Hypokinesia [Not Recovered/Not Resolved]
  - Hallucination [Recovered/Resolved]
  - Hallucination [Not Recovered/Not Resolved]

NARRATIVE: CASE EVENT DATE: 20250101
